FAERS Safety Report 12422536 (Version 1)
Quarter: 2016Q2

REPORT INFORMATION
  Report Type: Spontaneous
  Country: IT (occurrence: IT)
  Receive Date: 20160601
  Receipt Date: 20160601
  Transmission Date: 20160815
  Serious: Yes (Other)
  Sender: FDA-Public Use
  Company Number: IT-BAUSCH-BL-2016-012671

PATIENT
  Age: 43 Year
  Sex: Male

DRUGS (2)
  1. SUSTENIUM [Suspect]
     Active Substance: DIETARY SUPPLEMENT
     Indication: GASTROENTERITIS
     Route: 048
     Dates: start: 20160518, end: 20160518
  2. NORMIX 200 MG COMPRESSE RIVESTITE CON FILM [Suspect]
     Active Substance: RIFAXIMIN
     Indication: GASTROENTERITIS
     Route: 048
     Dates: start: 20160515, end: 20160518

REACTIONS (8)
  - Anxiety [Recovering/Resolving]
  - Anaphylactic shock [None]
  - Dyspnoea [Recovering/Resolving]
  - Urticaria [Recovering/Resolving]
  - Loss of consciousness [Recovering/Resolving]
  - Paraesthesia [Recovering/Resolving]
  - Erythema [None]
  - Dyspnoea [None]

NARRATIVE: CASE EVENT DATE: 20160518
